FAERS Safety Report 23934049 (Version 1)
Quarter: 2024Q2

REPORT INFORMATION
  Report Type: Spontaneous
  Country: US (occurrence: None)
  Receive Date: 20240603
  Receipt Date: 20240603
  Transmission Date: 20240715
  Serious: Yes (Other)
  Sender: FDA-Public Use
  Company Number: None

PATIENT
  Sex: Female

DRUGS (11)
  1. GAMMAGARD LIQUID [Suspect]
     Active Substance: HUMAN IMMUNOGLOBULIN G
     Indication: Blood immunoglobulin G decreased
     Dosage: FREQ: INFUSE 15 GRAMS (150 ML) INTRAVENOUSLY ONCE A MONTH?
     Route: 042
     Dates: start: 20180213
  2. ADVAIR DISKU AER [Concomitant]
  3. ALBUTEROL AER HFA [Concomitant]
  4. CLINDAMYCIN HYDROCHLORIDE [Concomitant]
     Active Substance: CLINDAMYCIN HYDROCHLORIDE
  5. DIPHENHYDRAM [Concomitant]
  6. ELIQUIS [Concomitant]
     Active Substance: APIXABAN
  7. EPINEPHRINE [Concomitant]
     Active Substance: EPINEPHRINE
  8. FLUCONAZOLE [Concomitant]
     Active Substance: FLUCONAZOLE
  9. GAMMAGARD S/D [Concomitant]
     Active Substance: HUMAN IMMUNOGLOBULIN G
  10. HEPARIN LOCK FLUSH [Concomitant]
     Active Substance: HEPARIN SODIUM
  11. HYDROMORPHONE [Concomitant]
     Active Substance: HYDROMORPHONE

REACTIONS (1)
  - Emergency care [None]
